FAERS Safety Report 9596054 (Version 2)
Quarter: 2013Q4

REPORT INFORMATION
  Report Type: Spontaneous
  Country: US (occurrence: US)
  Receive Date: 20131004
  Receipt Date: 20131018
  Transmission Date: 20140711
  Serious: No
  Sender: FDA-Public Use
  Company Number: US-PFIZER INC-2013281782

PATIENT
  Sex: Female

DRUGS (3)
  1. MOTRIN IB [Suspect]
     Dosage: UNK
     Route: 048
  2. GABAPENTIN [Concomitant]
     Indication: NERVE COMPRESSION
     Dosage: UNK
  3. COUMADINE [Concomitant]
     Dosage: UNK

REACTIONS (2)
  - Dizziness [Unknown]
  - Contraindication to medical treatment [Unknown]
